FAERS Safety Report 5647762-3 (Version None)
Quarter: 2008Q1

REPORT INFORMATION
  Report Type: 
  Country: None (occurrence: None)
  Receive Date: 20080303
  Receipt Date: 20080220
  Transmission Date: 20080703
  Serious: Yes (Other)
  Sender: FDA-Public Use
  Company Number: US-PFIZER INC-2008016246

PATIENT
  Sex: Female
  Weight: 68 kg

DRUGS (13)
  1. DILANTIN [Suspect]
     Indication: CONVULSION
     Route: 048
  2. PHENYTOIN [Suspect]
  3. PHENOBARBITAL TAB [Concomitant]
  4. PAXIL [Concomitant]
  5. NEURONTIN [Concomitant]
  6. DIOVAN [Concomitant]
  7. PRILOSEC [Concomitant]
  8. FOSAMAX [Concomitant]
  9. VITAMIN B-12 [Concomitant]
  10. DUONEB [Concomitant]
  11. OXYGEN [Concomitant]
  12. ADVAIR DISKUS 100/50 [Concomitant]
  13. VITAMIN CAP [Concomitant]

REACTIONS (5)
  - ANTICONVULSANT DRUG LEVEL DECREASED [None]
  - DISORIENTATION [None]
  - DIZZINESS [None]
  - FEELING ABNORMAL [None]
  - ROAD TRAFFIC ACCIDENT [None]
